FAERS Safety Report 24977079 (Version 1)
Quarter: 2025Q1

REPORT INFORMATION
  Report Type: Spontaneous
  Country: US (occurrence: US)
  Receive Date: 20250217
  Receipt Date: 20250217
  Transmission Date: 20250408
  Serious: No
  Sender: MERZ
  Company Number: US-Merz Pharmaceuticals GmbH-2025020000076

PATIENT

DRUGS (1)
  1. XEOMIN [Suspect]
     Active Substance: INCOBOTULINUMTOXINA
     Indication: Product used for unknown indication
     Dosage: 52 INTERNATIONAL UNIT

REACTIONS (1)
  - Therapeutic response decreased [Unknown]
